FAERS Safety Report 6609917-0 (Version None)
Quarter: 2010Q1

REPORT INFORMATION
  Report Type: 
  Country: None (occurrence: None)
  Receive Date: 20100224
  Receipt Date: 20100209
  Transmission Date: 20100710
  Serious: Yes (Other)
  Sender: FDA-Public Use
  Company Number: AUR-APL-2010-00512

PATIENT
  Age: 64 Year
  Sex: Female

DRUGS (3)
  1. MIRTAZAPINE [Suspect]
     Indication: DEPRESSION
     Dosage: 15-45MG - DAILY
     Dates: start: 20030101, end: 20080501
  2. PREGABALIN [Suspect]
     Indication: BACK PAIN
     Dosage: 300MG - DAILY
     Dates: start: 20080401
  3. PREGABALIN [Suspect]
     Indication: MUSCULOSKELETAL PAIN
     Dosage: 300MG - DAILY
     Dates: start: 20080401

REACTIONS (5)
  - BACK PAIN [None]
  - LIMB DISCOMFORT [None]
  - MUSCULOSKELETAL PAIN [None]
  - PARAESTHESIA [None]
  - REFUSAL OF TREATMENT BY PATIENT [None]
